FAERS Safety Report 24259496 (Version 1)
Quarter: 2024Q3

REPORT INFORMATION
  Report Type: Spontaneous
  Country: CA (occurrence: CA)
  Receive Date: 20240828
  Receipt Date: 20240828
  Transmission Date: 20241017
  Serious: Yes (Other)
  Sender: DAIICHI
  Company Number: CA-AstraZeneca-2024A192516

PATIENT
  Age: 73 Year
  Sex: Female
  Weight: 84 kg

DRUGS (1)
  1. TRASTUZUMAB DERUXTECAN [Suspect]
     Active Substance: TRASTUZUMAB DERUXTECAN
     Indication: HER2 negative breast cancer
     Dosage: UNK
     Route: 042

REACTIONS (3)
  - Dehydration [Unknown]
  - Headache [Unknown]
  - Sluggishness [Unknown]
